FAERS Safety Report 8431145-7 (Version None)
Quarter: 2012Q2

REPORT INFORMATION
  Report Type: 
  Country: None (occurrence: None)
  Receive Date: 20120612
  Receipt Date: 20120604
  Transmission Date: 20120825
  Serious: Yes (Hospitalization, Disabling)
  Sender: FDA-Public Use
  Company Number: US-MERCK-1111USA01448

PATIENT
  Age: 62 Year
  Sex: Female
  Weight: 68 kg

DRUGS (5)
  1. FOSAMAX [Suspect]
     Route: 048
  2. BONIVA [Concomitant]
     Indication: OSTEOPOROSIS
     Route: 065
  3. FOSAMAX PLUS D [Suspect]
     Indication: OSTEOPOROSIS
     Route: 048
     Dates: start: 20071101, end: 20090601
  4. FOSAMAX [Suspect]
     Indication: OSTEOPOROSIS
     Route: 048
     Dates: start: 19980101, end: 20090501
  5. FOSAMAX [Suspect]
     Route: 048

REACTIONS (29)
  - HAEMATOMA [None]
  - OVARIAN MASS [None]
  - VITAMIN D DEFICIENCY [None]
  - TOOTH DISORDER [None]
  - GINGIVAL DISORDER [None]
  - ELECTROCARDIOGRAM ABNORMAL [None]
  - FALL [None]
  - INTERVERTEBRAL DISC PROTRUSION [None]
  - TREATMENT NONCOMPLIANCE [None]
  - THROMBOCYTOPENIA [None]
  - SPONDYLOLYSIS [None]
  - COSTOCHONDRITIS [None]
  - HERPES ZOSTER [None]
  - STAPHYLOCOCCAL INFECTION [None]
  - ANTINUCLEAR ANTIBODY POSITIVE [None]
  - SPINAL OSTEOARTHRITIS [None]
  - LUMBAR SPINAL STENOSIS [None]
  - INJURY [None]
  - FEMORAL NECK FRACTURE [None]
  - ADVERSE EVENT [None]
  - AORTIC CALCIFICATION [None]
  - ATRIOVENTRICULAR BLOCK FIRST DEGREE [None]
  - SPONDYLOLISTHESIS [None]
  - DRUG INEFFECTIVE [None]
  - EXCORIATION [None]
  - INTERVERTEBRAL DISC DEGENERATION [None]
  - CERVICAL SPINAL STENOSIS [None]
  - OSTEOPENIA [None]
  - OSTEOARTHRITIS [None]
